FAERS Safety Report 8822177 (Version 3)
Quarter: 2012Q4

REPORT INFORMATION
  Report Type: 
  Country: AU (occurrence: AU)
  Receive Date: 20121003
  Receipt Date: 20121107
  Transmission Date: 20130627
  Serious: Yes (Death)
  Sender: FDA-Public Use
  Company Number: AU-CELGENEUS-008-21880-12093084

PATIENT
  Age: 62 Year
  Sex: Female
  Weight: 95 kg

DRUGS (5)
  1. REVLIMID [Suspect]
     Indication: MANTLE CELL LYMPHOMA
     Dosage: 25 Milligram
     Route: 048
     Dates: start: 20120811, end: 20120811
  2. REVLIMID [Suspect]
     Dosage: 10 Milligram
     Route: 048
     Dates: start: 20120812, end: 20120815
  3. CYCLOPHOSPHAMIDE [Concomitant]
     Indication: MANTLE CELL LYMPHOMA RECURRENT
     Route: 048
     Dates: start: 20120508, end: 20120804
  4. FLUDARABINE [Concomitant]
     Indication: MANTLE CELL LYMPHOMA RECURRENT
     Route: 048
     Dates: start: 20120508, end: 20120804
  5. LITHIUM [Concomitant]
     Indication: MANIA
     Route: 065

REACTIONS (1)
  - Mantle cell lymphoma recurrent [Fatal]
